FAERS Safety Report 26180089 (Version 1)
Quarter: 2025Q4

REPORT INFORMATION
  Report Type: Spontaneous
  Country: US (occurrence: US)
  Receive Date: 20251219
  Receipt Date: 20251219
  Transmission Date: 20260119
  Serious: Yes (Life-Threatening, Hospitalization, Other)
  Sender: ELI LILLY AND COMPANY
  Company Number: US-ELI_LILLY_AND_COMPANY-US202512021686

PATIENT
  Age: 72 Year
  Sex: Female

DRUGS (2)
  1. TIRZEPATIDE [Suspect]
     Active Substance: TIRZEPATIDE
     Indication: Product used for unknown indication
     Dosage: UNK, UNKNOWN
     Route: 065
  2. SEMAGLUTIDE [Suspect]
     Active Substance: SEMAGLUTIDE
     Indication: Product used for unknown indication
     Dosage: UNK, UNKNOWN
     Route: 048

REACTIONS (9)
  - Pancreatitis necrotising [Unknown]
  - Respiratory distress [Unknown]
  - Hypotension [Unknown]
  - Acute respiratory distress syndrome [Unknown]
  - Atrial fibrillation [Unknown]
  - Renal impairment [Recovered/Resolved]
  - Splenic vein thrombosis [Unknown]
  - Cholelithiasis [Unknown]
  - Lung disorder [Unknown]
